FAERS Safety Report 9423851 (Version 1)
Quarter: 2013Q3

REPORT INFORMATION
  Report Type: Spontaneous
  Country: CN (occurrence: CN)
  Receive Date: 20130729
  Receipt Date: 20130729
  Transmission Date: 20140515
  Serious: Yes (Other)
  Sender: FDA-Public Use
  Company Number: CN-PFIZER INC-2013214742

PATIENT
  Age: 35 Year
  Sex: Female
  Weight: 55 kg

DRUGS (3)
  1. PHARMORUBICIN [Suspect]
     Indication: BREAST CANCER
     Dosage: 140 MG, ONCE DAILY
     Route: 041
     Dates: start: 20120404, end: 20120404
  2. PALONOSETRON HYDROCHLORIDE [Concomitant]
     Indication: BREAST CANCER
     Dosage: 0.25 MG, UNK
     Route: 041
     Dates: start: 20120404
  3. ENDOXAN [Concomitant]
     Indication: BREAST CANCER
     Dosage: 0.8 G, UNK
     Route: 042
     Dates: start: 20120404

REACTIONS (7)
  - Nausea [Recovering/Resolving]
  - Vomiting [Recovering/Resolving]
  - Mucosal ulceration [Recovering/Resolving]
  - Rash vesicular [Recovering/Resolving]
  - White blood cell count decreased [Recovering/Resolving]
  - Aphagia [Recovering/Resolving]
  - Initial insomnia [Recovering/Resolving]
